FAERS Safety Report 22618958 (Version 1)
Quarter: 2023Q2

REPORT INFORMATION
  Report Type: Spontaneous
  Country: CN (occurrence: CN)
  Receive Date: 20230620
  Receipt Date: 20230620
  Transmission Date: 20230721
  Serious: Yes (Other)
  Sender: FDA-Public Use
  Company Number: None

PATIENT
  Age: 53 Year
  Sex: Female
  Weight: 51 kg

DRUGS (18)
  1. CYCLOPHOSPHAMIDE [Suspect]
     Active Substance: CYCLOPHOSPHAMIDE
     Indication: Neoplasm malignant
     Dosage: 0.85 G, QD, DILUTED WITH 100 ML OF 0.9 % SODIUM CHLORIDE
     Route: 041
     Dates: start: 20230531, end: 20230531
  2. CYCLOPHOSPHAMIDE [Suspect]
     Active Substance: CYCLOPHOSPHAMIDE
     Indication: Chemotherapy
  3. CYCLOPHOSPHAMIDE [Suspect]
     Active Substance: CYCLOPHOSPHAMIDE
     Indication: Gestational trophoblastic tumour
  4. SODIUM CHLORIDE [Suspect]
     Active Substance: SODIUM CHLORIDE
     Indication: Medication dilution
     Dosage: (0.9%) 500 ML. QD, USED TO DILUTE WITH 0.12 G OF ETOPOSIDE
     Route: 041
     Dates: start: 20230531, end: 20230602
  5. SODIUM CHLORIDE [Suspect]
     Active Substance: SODIUM CHLORIDE
     Dosage: (0.9%) 500 ML. QD, USED TO DILUTE WITH 0.15 G OF METHOTREXATE
     Route: 041
     Dates: start: 20230531, end: 20230531
  6. SODIUM CHLORIDE [Suspect]
     Active Substance: SODIUM CHLORIDE
     Dosage: (0.9%) 500 ML. QD, USED TO DILUTE WITH 0.15 G OF METHOTREXATE
     Route: 041
     Dates: start: 20230531, end: 20230531
  7. SODIUM CHLORIDE [Suspect]
     Active Substance: SODIUM CHLORIDE
     Dosage: (0.9%) 30 ML, QD, USED TO DILUTE WITH 0.14 G OF METHOTREXATE
     Route: 042
     Dates: start: 20230531, end: 20230531
  8. SODIUM CHLORIDE [Suspect]
     Active Substance: SODIUM CHLORIDE
     Dosage: (0.9%) 100 ML, QD, USED TO DILUTE WITH 0.85 G OF CYCLOHOSPHAMIDE
     Route: 041
     Dates: start: 20230531, end: 20230531
  9. DEXTROSE [Suspect]
     Active Substance: DEXTROSE\DEXTROSE MONOHYDRATE
     Indication: Medication dilution
     Dosage: (5%) 200 ML, QD, USED TO DILUTE WITH ACTIONMYCIN D
     Route: 041
     Dates: start: 20230531, end: 20230602
  10. ETOPOSIDE [Suspect]
     Active Substance: ETOPOSIDE
     Indication: Neoplasm malignant
     Dosage: 0.12 G, QD, DILUTED WITH 500 ML OF 0.9 % SODIUM CHLORIDE
     Route: 041
     Dates: start: 20230531, end: 20230602
  11. ETOPOSIDE [Suspect]
     Active Substance: ETOPOSIDE
     Indication: Chemotherapy
  12. ETOPOSIDE [Suspect]
     Active Substance: ETOPOSIDE
     Indication: Gestational trophoblastic tumour
  13. ACTINOMYCIN D [Suspect]
     Active Substance: DACTINOMYCIN
     Indication: Neoplasm malignant
     Dosage: 0.5 MG QD, DILUTED WITH 200 ML OF 5 % GLUCOSE
     Route: 041
     Dates: start: 20230531, end: 20230602
  14. ACTINOMYCIN D [Suspect]
     Active Substance: DACTINOMYCIN
     Indication: Chemotherapy
  15. ACTINOMYCIN D [Suspect]
     Active Substance: DACTINOMYCIN
     Indication: Gestational trophoblastic tumour
  16. METHOTREXATE [Suspect]
     Active Substance: METHOTREXATE
     Indication: Neoplasm malignant
     Dosage: 0.15 G, QD, DILUTED WITH 500 ML OF 0.9 % SODIUM CHLORIDE
     Route: 041
     Dates: start: 20230531, end: 20230531
  17. METHOTREXATE [Suspect]
     Active Substance: METHOTREXATE
     Indication: Chemotherapy
     Dosage: 0.15 G, QD DILUTED WITH 500 ML OF 0.9 % SODIUM CHLORIDE
     Route: 041
     Dates: start: 20230531, end: 20230531
  18. METHOTREXATE [Suspect]
     Active Substance: METHOTREXATE
     Indication: Gestational trophoblastic tumour
     Dosage: 0.14 G, QD, DILUTED WITH 30 ML OF 0.9 % SODIUM CHLORIDE
     Route: 042
     Dates: start: 20230531, end: 20230531

REACTIONS (2)
  - White blood cell count decreased [Recovering/Resolving]
  - Neutrophil count decreased [Recovering/Resolving]

NARRATIVE: CASE EVENT DATE: 20230607
